FAERS Safety Report 8301558-2 (Version None)
Quarter: 2012Q2

REPORT INFORMATION
  Report Type: 
  Country: None (occurrence: None)
  Receive Date: 20120420
  Receipt Date: 20120409
  Transmission Date: 20120825
  Serious: Yes (Death)
  Sender: FDA-Public Use
  Company Number: KR-ROCHE-1061430

PATIENT
  Age: 58 Year
  Sex: Female

DRUGS (3)
  1. XELODA [Suspect]
     Indication: GASTRIC CANCER
     Route: 048
  2. CISPLATIN [Suspect]
     Indication: GASTRIC CANCER
     Route: 042
  3. SORAFENIB [Suspect]
     Indication: GASTRIC CANCER
     Route: 048

REACTIONS (1)
  - GASTRIC PERFORATION [None]
